FAERS Safety Report 18180462 (Version 1)
Quarter: 2020Q3

REPORT INFORMATION
  Report Type: Spontaneous
  Country: US (occurrence: US)
  Receive Date: 20200821
  Receipt Date: 20200821
  Transmission Date: 20201103
  Serious: No
  Sender: FDA-Public Use
  Company Number: None

PATIENT
  Age: 45 Year
  Sex: Male
  Weight: 77.57 kg

DRUGS (2)
  1. CHANTIX1 MG BID [Concomitant]
     Dates: start: 20200713
  2. CHANTIX [Suspect]
     Active Substance: VARENICLINE TARTRATE
     Indication: SMOKING CESSATION THERAPY
     Route: 048
     Dates: start: 20200713, end: 20200803

REACTIONS (1)
  - Homicidal ideation [None]

NARRATIVE: CASE EVENT DATE: 20200803
